FAERS Safety Report 5100725-9 (Version None)
Quarter: 2006Q3

REPORT INFORMATION
  Report Type: 
  Country: None (occurrence: None)
  Receive Date: 20060906
  Receipt Date: 20060821
  Transmission Date: 20061208
  Serious: Yes (Other)
  Sender: FDA-Public Use
  Company Number: 2005089361

PATIENT
  Sex: Female
  Weight: 61.2356 kg

DRUGS (6)
  1. CELEBREX [Suspect]
     Indication: ARTHRALGIA
     Dosage: 200 MG (200 MG, 1 IN 1 D), ORAL
     Route: 048
     Dates: start: 20040223
  2. VICODIN [Concomitant]
  3. NORTRIPTYLINE HCL [Concomitant]
  4. ACTONEL [Concomitant]
  5. FLONASE [Concomitant]
  6. LIPITOR [Concomitant]

REACTIONS (14)
  - ARTHRITIS [None]
  - CONDITION AGGRAVATED [None]
  - DRUG EFFECT DECREASED [None]
  - FATIGUE [None]
  - HEADACHE [None]
  - HYPERLIPIDAEMIA [None]
  - HYPERTONIC BLADDER [None]
  - ILL-DEFINED DISORDER [None]
  - JOINT INJURY [None]
  - MALAISE [None]
  - MENISCUS LESION [None]
  - OSTEOPOROSIS [None]
  - POLYARTHRITIS [None]
  - WHITE BLOOD CELL DISORDER [None]
